FAERS Safety Report 6905843-8 (Version None)
Quarter: 2010Q3

REPORT INFORMATION
  Report Type: 
  Country: None (occurrence: None)
  Receive Date: 20100802
  Receipt Date: 20100802
  Transmission Date: 20110219
  Serious: Yes (Disabling, Other)
  Sender: FDA-Public Use
  Company Number: None

PATIENT
  Sex: Female
  Weight: 65.7716 kg

DRUGS (1)
  1. TRILIPIX [Suspect]
     Indication: BLOOD TRIGLYCERIDES INCREASED
     Dosage: 1
     Dates: start: 20100707

REACTIONS (5)
  - BLISTER [None]
  - BLOOD BLISTER [None]
  - RASH [None]
  - SCAR [None]
  - SKIN EXFOLIATION [None]
